FAERS Safety Report 10659928 (Version 1)
Quarter: 2014Q4

REPORT INFORMATION
  Report Type: Spontaneous
  Country: US (occurrence: None)
  Receive Date: 20141216
  Receipt Date: 20141216
  Transmission Date: 20150529
  Serious: Yes (Disabling)
  Sender: FDA-Public Use
  Company Number: None

PATIENT
  Age: 56 Year
  Sex: Female
  Weight: 67.59 kg

DRUGS (1)
  1. LEVAQUIN [Suspect]
     Active Substance: LEVOFLOXACIN
     Indication: BRONCHITIS
     Route: 048

REACTIONS (6)
  - Tinnitus [None]
  - Rash [None]
  - Tendon pain [None]
  - Drug hypersensitivity [None]
  - Anaphylactic shock [None]
  - Neuropathy peripheral [None]

NARRATIVE: CASE EVENT DATE: 20081231
